FAERS Safety Report 8813743 (Version 1)
Quarter: 2012Q4

REPORT INFORMATION
  Report Type: 
  Country: DE (occurrence: DE)
  Receive Date: 20120928
  Receipt Date: 20120928
  Transmission Date: 20130627
  Serious: Yes (Other)
  Sender: FDA-Public Use
  Company Number: DE-AMGEN-DEUSP2012060890

PATIENT
  Sex: Male

DRUGS (1)
  1. ENBREL [Suspect]
     Indication: ANKYLOSING SPONDYLITIS
     Dosage: UNK
     Dates: start: 201204

REACTIONS (5)
  - Macular oedema [Unknown]
  - Visual field defect [Unknown]
  - Vision blurred [Unknown]
  - Eye haemorrhage [Unknown]
  - Arthralgia [Unknown]
